FAERS Safety Report 16848885 (Version 1)
Quarter: 2019Q3

REPORT INFORMATION
  Report Type: Other
  Country: US (occurrence: US)
  Receive Date: 20190925
  Receipt Date: 20190925
  Transmission Date: 20191005
  Serious: Yes (Hospitalization)
  Sender: FDA-Public Use
  Company Number: US-ORCHID HEALTHCARE-2074874

PATIENT
  Age: 64 Year
  Sex: Female

DRUGS (1)
  1. RISEDRONATE SODIUM. [Suspect]
     Active Substance: RISEDRONATE SODIUM
     Indication: OSTEOPOROSIS
     Route: 065

REACTIONS (10)
  - Pyrexia [Recovering/Resolving]
  - Periorbital cellulitis [Recovering/Resolving]
  - Conjunctival oedema [Recovering/Resolving]
  - Periorbital oedema [Recovering/Resolving]
  - Thrombocytosis [Recovering/Resolving]
  - Eye pain [Recovering/Resolving]
  - Episcleral hyperaemia [Recovering/Resolving]
  - Conjunctivitis [Recovering/Resolving]
  - Leukocytosis [Recovering/Resolving]
  - C-reactive protein increased [Recovering/Resolving]
